FAERS Safety Report 8379805-0 (Version None)
Quarter: 2012Q1

REPORT INFORMATION
  Report Type: 
  Country: None (occurrence: None)
  Receive Date: 20120323
  Receipt Date: 20110602
  Transmission Date: 20120608
  Serious: Yes (Other)
  Sender: FDA-Public Use
  Company Number: 163-21880-11032641

PATIENT
  Age: 74 Year
  Sex: Male

DRUGS (8)
  1. OMEPRAZOLE [Concomitant]
  2. WARFARIN SODIUM [Concomitant]
  3. LOVENOX [Concomitant]
  4. REVLIMID [Suspect]
     Indication: MULTIPLE MYELOMA
     Dosage: 25 MG, 1 IN 1 D, PO
     Route: 048
     Dates: start: 20090101, end: 20090101
  5. COZAAR [Concomitant]
  6. TRIMETH/SULFADS (BACTRIM) [Concomitant]
  7. TERAZOSIN HCL [Concomitant]
  8. ACYCLOVIR [Concomitant]

REACTIONS (1)
  - INFECTION [None]
